FAERS Safety Report 19300100 (Version 4)
Quarter: 2021Q2

REPORT INFORMATION
  Report Type: Spontaneous
  Country: US (occurrence: US)
  Receive Date: 20210524
  Receipt Date: 20210614
  Transmission Date: 20210717
  Serious: Yes (Hospitalization)
  Sender: FDA-Public Use
  Company Number: US-CELGENEUS-USA-20210504269

PATIENT
  Age: 63 Year
  Sex: Male

DRUGS (3)
  1. REVLIMID [Suspect]
     Active Substance: LENALIDOMIDE
     Indication: PLASMA CELL MYELOMA
     Dosage: 25 MILLIGRAM
     Route: 048
     Dates: start: 20201112
  2. REVLIMID [Suspect]
     Active Substance: LENALIDOMIDE
     Dosage: 25 MILLIGRAM
     Route: 048
     Dates: start: 202104
  3. REVLIMID [Suspect]
     Active Substance: LENALIDOMIDE
     Dosage: 25 MILLIGRAM
     Route: 048
     Dates: start: 20201113

REACTIONS (6)
  - Neuropathy peripheral [Not Recovered/Not Resolved]
  - Neoplasm malignant [Not Recovered/Not Resolved]
  - Chest pain [Not Recovered/Not Resolved]
  - COVID-19 pneumonia [Not Recovered/Not Resolved]
  - Movement disorder [Not Recovered/Not Resolved]
  - Burning sensation [Not Recovered/Not Resolved]

NARRATIVE: CASE EVENT DATE: 202104
